FAERS Safety Report 17427409 (Version 2)
Quarter: 2020Q2

REPORT INFORMATION
  Report Type: Spontaneous
  Country: DE (occurrence: DE)
  Receive Date: 20200218
  Receipt Date: 20200521
  Transmission Date: 20200713
  Serious: Yes (Other)
  Sender: FDA-Public Use
  Company Number: DE-ASTRAZENECA-2020SE21868

PATIENT
  Age: 22495 Day
  Sex: Male
  Weight: 95 kg

DRUGS (14)
  1. TRIAMTEREN [Concomitant]
     Active Substance: TRIAMTERENE
  2. DILTIAZEM. [Concomitant]
     Active Substance: DILTIAZEM
  3. PANTOPRAZOL [Concomitant]
     Active Substance: PANTOPRAZOLE SODIUM
  4. TORASEMID [Concomitant]
     Active Substance: TORSEMIDE
  5. SPIRIVA [Concomitant]
     Active Substance: TIOTROPIUM BROMIDE MONOHYDRATE
  6. FASENRA [Suspect]
     Active Substance: BENRALIZUMAB
     Indication: ASTHMA
     Route: 058
     Dates: start: 20180705, end: 20191212
  7. MARCUMAR [Concomitant]
     Active Substance: PHENPROCOUMON
  8. VALSARTAN. [Concomitant]
     Active Substance: VALSARTAN
  9. BEROTEC [Concomitant]
     Active Substance: FENOTEROL HYDROBROMIDE
  10. NOVOPULMON [Concomitant]
     Active Substance: BUDESONIDE
  11. SINGULAIR [Concomitant]
     Active Substance: MONTELUKAST SODIUM
  12. FORMATRIS [Concomitant]
     Active Substance: FORMOTEROL FUMARATE
  13. FASENRA [Suspect]
     Active Substance: BENRALIZUMAB
     Indication: CHRONIC OBSTRUCTIVE PULMONARY DISEASE
     Route: 058
     Dates: start: 20180705, end: 20191212
  14. ATORVASTATIN [Concomitant]
     Active Substance: ATORVASTATIN

REACTIONS (2)
  - Ileus [Unknown]
  - Gastrointestinal stromal tumour [Recovered/Resolved]

NARRATIVE: CASE EVENT DATE: 20191223
